FAERS Safety Report 4914505-8 (Version None)
Quarter: 2006Q1

REPORT INFORMATION
  Report Type: 
  Country: None (occurrence: None)
  Receive Date: 20060216
  Receipt Date: 20050728
  Transmission Date: 20060701
  Serious: Yes (Hospitalization)
  Sender: FDA-Public Use
  Company Number: DE-MERCK-0508DEU00001

PATIENT
  Age: 57 Year
  Sex: Male
  Weight: 100 kg

DRUGS (10)
  1. ZETIA [Suspect]
     Indication: HYPERCHOLESTEROLAEMIA
     Route: 048
     Dates: start: 20040803, end: 20050602
  2. ATORVASTATIN CALCIUM [Concomitant]
     Indication: HYPERLIPIDAEMIA
     Route: 048
     Dates: start: 20040401, end: 20040101
  3. PHENPROCOUMON [Concomitant]
     Route: 048
     Dates: start: 20040201, end: 20040527
  4. PANTOPRAZOLE SODIUM [Concomitant]
     Indication: GASTRITIS
     Route: 048
  5. BISOPROLOL FUMARATE [Concomitant]
     Route: 048
     Dates: start: 20040201, end: 20050501
  6. CLOPIDOGREL BISULFATE [Concomitant]
     Indication: CORONARY ARTERY DISEASE
     Route: 048
     Dates: start: 20040201
  7. INSULIN [Concomitant]
     Route: 065
     Dates: start: 19600101
  8. ASPIRIN [Concomitant]
     Route: 065
     Dates: start: 19950101
  9. SERTRALINE HYDROCHLORIDE [Concomitant]
     Route: 065
  10. RAMIPRIL [Concomitant]
     Route: 065

REACTIONS (12)
  - ANGINA PECTORIS [None]
  - ASTHENIA [None]
  - BLOOD CREATINE PHOSPHOKINASE INCREASED [None]
  - CHEST PAIN [None]
  - DYSPNOEA [None]
  - FATIGUE [None]
  - FLUID RETENTION [None]
  - HYPERHIDROSIS [None]
  - LIVER FUNCTION TEST ABNORMAL [None]
  - MALAISE [None]
  - MYALGIA [None]
  - WEIGHT INCREASED [None]
